FAERS Safety Report 8002043-8 (Version None)
Quarter: 2011Q4

REPORT INFORMATION
  Report Type: 
  Country: None (occurrence: None)
  Receive Date: 20111222
  Receipt Date: 20111214
  Transmission Date: 20120403
  Serious: Yes (Hospitalization)
  Sender: FDA-Public Use
  Company Number: US-ABBOTT-11P-163-0883456-00

PATIENT
  Sex: Male

DRUGS (6)
  1. ACTONEL [Concomitant]
     Indication: OSTEOPOROSIS
  2. HUMIRA [Suspect]
     Indication: PSORIATIC ARTHROPATHY
     Route: 058
     Dates: start: 20110701, end: 20111201
  3. GABAPENTIN [Concomitant]
     Indication: PSORIATIC ARTHROPATHY
  4. SULFASALAZINE [Concomitant]
     Indication: PSORIATIC ARTHROPATHY
  5. DICLOFENAC SODIUM [Concomitant]
     Indication: PSORIATIC ARTHROPATHY
  6. ANDROGEL [Concomitant]
     Indication: BLOOD TESTOSTERONE DECREASED

REACTIONS (7)
  - IMMUNOSUPPRESSION [None]
  - VOMITING [None]
  - MALAISE [None]
  - CHILLS [None]
  - VIRAL INFECTION [None]
  - ASTHENIA [None]
  - NAUSEA [None]
